FAERS Safety Report 9466844 (Version 1)
Quarter: 2013Q3

REPORT INFORMATION
  Report Type: Spontaneous
  Country: US (occurrence: US)
  Receive Date: 20130820
  Receipt Date: 20130820
  Transmission Date: 20140515
  Serious: No
  Sender: FDA-Public Use
  Company Number: US-ROXANE LABORATORIES, INC.-2013-RO-01386RO

PATIENT
  Sex: Female

DRUGS (1)
  1. BUPRENORPHINE HYDROCHLORIDE [Suspect]
     Dosage: 10 MG
     Route: 048
     Dates: start: 201303

REACTIONS (3)
  - Dizziness [Unknown]
  - Flushing [Unknown]
  - Palpitations [Unknown]
